FAERS Safety Report 9054243 (Version 1)
Quarter: 2013Q1

REPORT INFORMATION
  Report Type: Spontaneous
  Country: US (occurrence: US)
  Receive Date: 20130208
  Receipt Date: 20130208
  Transmission Date: 20140127
  Serious: Yes (Hospitalization)
  Sender: FDA-Public Use
  Company Number: US-GLAXOSMITHKLINE-A1010632A

PATIENT
  Age: 49 Year
  Sex: Female

DRUGS (2)
  1. VENTOLIN [Suspect]
     Indication: ASTHMA
     Dosage: 2PUFF PER DAY
     Route: 055
     Dates: start: 2012
  2. PAIN MEDICATION [Concomitant]

REACTIONS (3)
  - Respiratory disorder [Recovering/Resolving]
  - Nasopharyngitis [Unknown]
  - Dyspnoea exertional [Unknown]
